FAERS Safety Report 5911947-9 (Version None)
Quarter: 2008Q4

REPORT INFORMATION
  Report Type: 
  Country: None (occurrence: None)
  Receive Date: 20081008
  Receipt Date: 20080929
  Transmission Date: 20090506
  Serious: Yes (Hospitalization, Other)
  Sender: FDA-Public Use
  Company Number: PHHY2008JP21998

PATIENT
  Sex: Female
  Weight: 8 kg

DRUGS (3)
  1. TEGRETOL [Suspect]
     Indication: CONVULSION
     Dosage: 50 MG, QD
     Route: 048
     Dates: start: 20080903, end: 20080905
  2. WAKOBITAL [Concomitant]
     Indication: CONVULSION
     Dosage: 30MG
     Route: 054
     Dates: start: 20080905, end: 20080909
  3. DIAPP [Concomitant]
     Indication: CONVULSION
     Dosage: 8MG
     Route: 054
     Dates: start: 20080901, end: 20080901

REACTIONS (15)
  - BLOOD ALKALINE PHOSPHATASE INCREASED [None]
  - BLOOD OSMOLARITY DECREASED [None]
  - BLOOD SODIUM DECREASED [None]
  - GAMMA-GLUTAMYLTRANSFERASE DECREASED [None]
  - HYPOKINESIA [None]
  - INAPPROPRIATE ANTIDIURETIC HORMONE SECRETION [None]
  - JOINT ANKYLOSIS [None]
  - MUSCLE RIGIDITY [None]
  - PALLOR [None]
  - POLYDIPSIA [None]
  - POLYDIPSIA PSYCHOGENIC [None]
  - POLYURIA [None]
  - STARING [None]
  - TREMOR [None]
  - URINE SODIUM INCREASED [None]
